FAERS Safety Report 14174222 (Version 1)
Quarter: 2017Q4

REPORT INFORMATION
  Report Type: Spontaneous
  Country: US (occurrence: US)
  Receive Date: 20171109
  Receipt Date: 20171109
  Transmission Date: 20180321
  Serious: Yes (Other)
  Sender: FDA-Public Use
  Company Number: US-BRACCO-2017US05004

PATIENT
  Sex: Female

DRUGS (4)
  1. MULTIHANCE [Suspect]
     Active Substance: GADOBENATE DIMEGLUMINE
     Indication: NUCLEAR MAGNETIC RESONANCE IMAGING
     Dosage: UNK
  2. GADOLINIUM [Suspect]
     Active Substance: GADOLINIUM
     Indication: NUCLEAR MAGNETIC RESONANCE IMAGING
  3. MAGNEVIST [Suspect]
     Active Substance: GADOPENTETATE DIMEGLUMINE
     Indication: NUCLEAR MAGNETIC RESONANCE IMAGING
  4. GADAVIST [Suspect]
     Active Substance: GADOBUTROL
     Indication: NUCLEAR MAGNETIC RESONANCE IMAGING

REACTIONS (13)
  - Anxiety [Unknown]
  - Pain [Unknown]
  - Decreased appetite [Unknown]
  - Dyspepsia [Unknown]
  - Injury [Unknown]
  - Heart rate increased [Unknown]
  - Nausea [Unknown]
  - Gadolinium deposition disease [Unknown]
  - Skin burning sensation [Unknown]
  - Drug hypersensitivity [Unknown]
  - Food intolerance [Unknown]
  - Emotional distress [Unknown]
  - Dehydration [Unknown]
